FAERS Safety Report 21353819 (Version 1)
Quarter: 2022Q3

REPORT INFORMATION
  Report Type: Report from Study
  Country: CL (occurrence: CL)
  Receive Date: 20220920
  Receipt Date: 20220920
  Transmission Date: 20221026
  Serious: Yes (Other)
  Sender: FDA-Public Use
  Company Number: CL-TEVA-813276ISR

PATIENT
  Sex: Female

DRUGS (1)
  1. CAPECITABINE [Suspect]
     Active Substance: CAPECITABINE
     Indication: Colon cancer
     Dosage: 1ST CYCLE: 3 TABLETS OF 500MG + 3 TABLETS OF 500MG
     Route: 048
     Dates: start: 20170706, end: 20170903

REACTIONS (2)
  - Deep vein thrombosis [Not Recovered/Not Resolved]
  - International normalised ratio abnormal [Not Recovered/Not Resolved]
